FAERS Safety Report 21390385 (Version 1)
Quarter: 2022Q3

REPORT INFORMATION
  Report Type: Report from Study
  Country: JP (occurrence: JP)
  Receive Date: 20220929
  Receipt Date: 20220929
  Transmission Date: 20221027
  Serious: Yes (Hospitalization)
  Sender: FDA-Public Use
  Company Number: JP-BRISTOL-MYERS SQUIBB COMPANY-2022-110037

PATIENT
  Age: 73 Year
  Sex: Male
  Weight: 66 kg

DRUGS (21)
  1. PACLITAXEL [Suspect]
     Active Substance: PACLITAXEL
     Indication: Non-small cell lung cancer
     Dosage: PRIOR TO THE ONSET OF THE EVENT, THE PATIENT RECEIVED HIS MOST RECENT DOSE ON 09-AUG-2022 (CYCLE 3 D
     Route: 065
     Dates: start: 20220705, end: 20220809
  2. CARBOPLATIN [Suspect]
     Active Substance: CARBOPLATIN
     Indication: Non-small cell lung cancer
     Dosage: PRIOR TO THE ONSET OF THE EVENT, THE PATIENT RECEIVED HIS MOST RECENT DOSE ON 09-AUG-2022 (CYCLE 3 D
     Route: 065
     Dates: start: 20220705, end: 20220809
  3. METFORMIN HYDROCHLORIDE [Concomitant]
     Active Substance: METFORMIN HYDROCHLORIDE
     Indication: Product used for unknown indication
     Dosage: DAILY; PER DAY?ONGOING
     Route: 048
     Dates: start: 20220722
  4. INSULIN GLARGINE [Concomitant]
     Active Substance: INSULIN GLARGINE
     Indication: Product used for unknown indication
     Dosage: AS NEEDED?ONGOING
     Route: 058
     Dates: start: 2012
  5. IMEGLIMIN HYDROCHLORIDE [Concomitant]
     Indication: Product used for unknown indication
     Dosage: BD; TWICE PER DAY?ONGOING
     Route: 048
     Dates: start: 2012
  6. ELOBIXIBAT [Concomitant]
     Active Substance: ELOBIXIBAT
     Indication: Product used for unknown indication
     Dosage: ELOBIXIBAT HYDRATE?DAILY; PER DAY?ONGOING
     Route: 048
     Dates: start: 2020
  7. SHAKUYAKUKANZOTO [Concomitant]
     Active Substance: HERBALS
     Indication: Product used for unknown indication
     Dosage: AS NEEDED?ONGOING
     Route: 048
     Dates: start: 20220708
  8. DOMPERIDONE MALEATE [Concomitant]
     Active Substance: DOMPERIDONE MALEATE
     Indication: Vomiting
     Dosage: AS NEEDED?ONGOING
     Route: 048
     Dates: start: 20220708
  9. DOMPERIDONE MALEATE [Concomitant]
     Active Substance: DOMPERIDONE MALEATE
     Indication: Nausea
  10. CALONAL [Concomitant]
     Active Substance: ACETAMINOPHEN
     Indication: Product used for unknown indication
     Dosage: CALONAL TABLETS 200?AS NEEDED?ONGOING
     Route: 048
     Dates: start: 20220709
  11. GLIMEPIRIDE [Concomitant]
     Active Substance: GLIMEPIRIDE
     Indication: Product used for unknown indication
     Dosage: DAILY; PER DAY?ONGOING
     Route: 048
     Dates: start: 20220714
  12. HEPARINOID [Concomitant]
     Indication: Radiation skin injury
     Dosage: AS NEEDED?ONGOING
     Route: 062
     Dates: start: 20220721
  13. ICOSAPENT ETHYL [Concomitant]
     Active Substance: ICOSAPENT ETHYL
     Indication: Product used for unknown indication
     Dosage: BD; TWICE PER DAY?ONGOING
     Route: 048
     Dates: start: 20220722
  14. DAPAGLIFLOZIN PROPANEDIOL [Concomitant]
     Active Substance: DAPAGLIFLOZIN PROPANEDIOL
     Indication: Product used for unknown indication
     Dosage: DAPAGLIFLOZIN PROPYLENE GLYCOLATE HYDRATE?DAILY; PER DAY?ONGOING
     Route: 048
     Dates: start: 20220722
  15. PIOGLITAZONE HYDROCHLORIDE [Concomitant]
     Active Substance: PIOGLITAZONE HYDROCHLORIDE
     Indication: Product used for unknown indication
     Dosage: DAILY; PER DAY?ONGOING
     Route: 048
     Dates: start: 20220722
  16. AMLODIPINE BESYLATE [Concomitant]
     Active Substance: AMLODIPINE BESYLATE
     Indication: Product used for unknown indication
     Dosage: DAILY; PER DAY?ONGOING
     Route: 048
     Dates: start: 20220722
  17. ATORVASTATIN CALCIUM TRIHYDRATE [Concomitant]
     Active Substance: ATORVASTATIN CALCIUM TRIHYDRATE
     Indication: Product used for unknown indication
     Dosage: ATORVASTATIN CALCIUM HYDRATE?DAILY; PER DAY?ONGOING
     Route: 048
     Dates: start: 20220722
  18. RINDERON VG [Concomitant]
     Active Substance: BETAMETHASONE VALERATE\GENTAMICIN SULFATE
     Indication: Radiation skin injury
     Dosage: RINDERON-VG?AS NEEDED?ONGOING
     Route: 062
     Dates: start: 20220816
  19. ESOMEPRAZOLE MAGNESIUM [Concomitant]
     Active Substance: ESOMEPRAZOLE MAGNESIUM
     Indication: Product used for unknown indication
     Dosage: ESOMEPRAZOLE MAGNESIUM HYDRATE?DAILY; PER DAY?ONGOING
     Route: 048
     Dates: start: 2021
  20. SODIUM PICOSULFATE MONOHYDRATE [Concomitant]
     Active Substance: SODIUM PICOSULFATE MONOHYDRATE
     Indication: Product used for unknown indication
     Dosage: SODIUM PICOSULFATE HYDRATE?AS NEEDED?ONGOING
     Route: 048
     Dates: start: 2021
  21. LOXOPROFEN SODIUM DIHYDRATE [Concomitant]
     Active Substance: LOXOPROFEN SODIUM DIHYDRATE
     Indication: Product used for unknown indication
     Dosage: AS NEEDED?ONGOING
     Route: 062
     Dates: start: 2021

REACTIONS (1)
  - Pleurisy [Recovered/Resolved]

NARRATIVE: CASE EVENT DATE: 20220909
